FAERS Safety Report 7513958-9 (Version None)
Quarter: 2011Q2

REPORT INFORMATION
  Report Type: 
  Country: None (occurrence: None)
  Receive Date: 20110531
  Receipt Date: 20110519
  Transmission Date: 20111010
  Serious: Yes (Other)
  Sender: FDA-Public Use
  Company Number: AU-UCBSA-033420

PATIENT
  Age: 15 Year
  Sex: Male

DRUGS (5)
  1. KEPPRA [Suspect]
     Route: 042
     Dates: start: 20110514
  2. KEPPRA [Suspect]
     Indication: STATUS EPILEPTICUS
     Route: 042
     Dates: start: 20110513, end: 20110513
  3. CEPHALEXIN [Suspect]
     Route: 042
  4. ACYCLOVIR [Suspect]
     Route: 042
     Dates: end: 20110101
  5. PHENYTOIN [Suspect]
     Route: 042

REACTIONS (1)
  - RHABDOMYOLYSIS [None]
